FAERS Safety Report 20803178 (Version 1)
Quarter: 2022Q2

REPORT INFORMATION
  Report Type: Spontaneous
  Country: FR (occurrence: FR)
  Receive Date: 20220509
  Receipt Date: 20220509
  Transmission Date: 20220720
  Serious: Yes (Death)
  Sender: FDA-Public Use
  Company Number: FR-PFIZER INC-202200649500

PATIENT
  Age: 94 Year
  Sex: Female
  Weight: 75 kg

DRUGS (7)
  1. VYNDAQEL [Suspect]
     Active Substance: TAFAMIDIS MEGLUMINE
     Dosage: 20 MG, DAILY
  2. AMIODARONE [Concomitant]
     Active Substance: AMIODARONE
     Dosage: 200 MG
  3. ELIQUIS [Concomitant]
     Active Substance: APIXABAN
     Dosage: 10 MG
  4. POTASSIUM CHLORIDE [Concomitant]
     Active Substance: POTASSIUM CHLORIDE
     Dosage: 2000 MG
  5. FUROSEMIDE [Concomitant]
     Active Substance: FUROSEMIDE
     Dosage: 375 MG
  6. LEVOTHYROXINE [Concomitant]
     Active Substance: LEVOTHYROXINE
     Dosage: 150 MG
  7. TRIMEBUTINE [Concomitant]
     Active Substance: TRIMEBUTINE
     Dosage: 100 MG

REACTIONS (1)
  - Death [Fatal]

NARRATIVE: CASE EVENT DATE: 20200801
